FAERS Safety Report 11447517 (Version 3)
Quarter: 2015Q4

REPORT INFORMATION
  Report Type: Report from Study
  Country: ID (occurrence: ID)
  Receive Date: 20150902
  Receipt Date: 20151130
  Transmission Date: 20160304
  Serious: Yes (Death, Life-Threatening, Hospitalization, Other)
  Sender: FDA-Public Use
  Company Number: ID-BAYER-2015-366215

PATIENT
  Age: 65 Year
  Sex: Female

DRUGS (1)
  1. NEXAVAR [Suspect]
     Active Substance: SORAFENIB
     Indication: HEPATOCELLULAR CARCINOMA
     Dosage: 200 MG, BID
     Route: 048
     Dates: start: 20150508

REACTIONS (8)
  - Tremor [None]
  - Rash [None]
  - Nausea [None]
  - Weight decreased [None]
  - Decreased appetite [None]
  - General physical health deterioration [Fatal]
  - Muscular weakness [None]
  - Vomiting [None]

NARRATIVE: CASE EVENT DATE: 201506
